FAERS Safety Report 14235060 (Version 1)
Quarter: 2017Q4

REPORT INFORMATION
  Report Type: Report from Study
  Country: IL (occurrence: IL)
  Receive Date: 20171129
  Receipt Date: 20171129
  Transmission Date: 20180321
  Serious: Yes (Death)
  Sender: FDA-Public Use
  Company Number: IL-CIPLA LTD.-2017IL21189

PATIENT

DRUGS (2)
  1. GEMCITABINE [Suspect]
     Active Substance: GEMCITABINE\GEMCITABINE HYDROCHLORIDE
     Indication: ADENOCARCINOMA PANCREAS
     Dosage: 1000 MG/M2, WEEKLY FOR 3 OF 4 WEEK
     Route: 042
  2. CURCUMIN [Suspect]
     Active Substance: CURCUMIN
     Indication: ADENOCARCINOMA PANCREAS
     Dosage: 8000 MG, DAILY DIVIDED INTO 2 DAILY DOSES OF 4,000 MG EACH
     Route: 048

REACTIONS (1)
  - Myocardial infarction [Fatal]
